FAERS Safety Report 6406421-X (Version None)
Quarter: 2009Q4

REPORT INFORMATION
  Report Type: 
  Country: None (occurrence: None)
  Receive Date: 20091014
  Receipt Date: 20091005
  Transmission Date: 20100525
  Serious: Yes (Other)
  Sender: FDA-Public Use
  Company Number: 231347J09USA

PATIENT
  Age: 50 Year
  Sex: Female

DRUGS (8)
  1. REBIF [Suspect]
     Indication: MULTIPLE SCLEROSIS
     Dosage: 44 MCG, 3 IN 1 WEEKS, SUBCUTANEOUS
     Route: 058
     Dates: start: 20051101
  2. ADVIL (IBUPROFEN) [Concomitant]
  3. UNSPECIFIED PAIN MEDICATIONS (ALL OTHER THERAPEUTIC PRODUCTS) [Concomitant]
  4. LISINOPRIL [Concomitant]
  5. FISH OIL (FISH OIL) [Concomitant]
  6. CALCIUM 600 WITH VITAMIN D (CALCIUM D) [Concomitant]
  7. CYMBALTA [Concomitant]
  8. REQUIP [Concomitant]

REACTIONS (6)
  - ALANINE AMINOTRANSFERASE INCREASED [None]
  - ASPARTATE AMINOTRANSFERASE INCREASED [None]
  - DIABETES MELLITUS [None]
  - HEPATIC ENZYME INCREASED [None]
  - POLYP [None]
  - THYROID DISORDER [None]
